FAERS Safety Report 5241441-2 (Version None)
Quarter: 2007Q1

REPORT INFORMATION
  Report Type: 
  Country: None (occurrence: None)
  Receive Date: 20070220
  Receipt Date: 20070209
  Transmission Date: 20070707
  Serious: Yes (Hospitalization)
  Sender: FDA-Public Use
  Company Number: FR-AVENTIS-200311248FR

PATIENT
  Age: 29 Year
  Sex: Female

DRUGS (4)
  1. KETEK [Suspect]
     Route: 048
     Dates: start: 20030319, end: 20030319
  2. MESTINON [Concomitant]
     Route: 048
  3. VEINOGLOBULINE [Concomitant]
     Route: 042
  4. VEINOGLOBULINE [Concomitant]
     Route: 042

REACTIONS (8)
  - DIPLOPIA [None]
  - DYSPNOEA [None]
  - MALAISE [None]
  - MUSCULAR WEAKNESS [None]
  - NECK PAIN [None]
  - RESPIRATORY ARREST [None]
  - RESPIRATORY FAILURE [None]
  - TONGUE PARALYSIS [None]
